FAERS Safety Report 17478917 (Version 1)
Quarter: 2020Q1

REPORT INFORMATION
  Report Type: Report from Study
  Country: CA (occurrence: US)
  Receive Date: 20200228
  Receipt Date: 20200228
  Transmission Date: 20200409
  Serious: Yes (Other)
  Sender: FDA-Public Use
  Company Number: CA-EXELIXIS-XL18420027598

PATIENT
  Age: 68 Year
  Sex: Female
  Weight: 79.7 kg

DRUGS (2)
  1. XL184 [Suspect]
     Active Substance: CABOZANTINIB
     Indication: UTERINE CANCER
     Dosage: 40 MG, QD
     Route: 048
     Dates: start: 20181017, end: 20190604
  2. NIVOLUMAB [Suspect]
     Active Substance: NIVOLUMAB
     Indication: UTERINE CANCER
     Dosage: 240 MG OVER 60 MINUTES ON DAYS 1 AND 15
     Route: 042
     Dates: start: 20181017, end: 20190206

REACTIONS (1)
  - Anal fistula [Recovered/Resolved]

NARRATIVE: CASE EVENT DATE: 20190828
